FAERS Safety Report 20143649 (Version 2)
Quarter: 2025Q4

REPORT INFORMATION
  Report Type: Report from Study
  Country: EU (occurrence: EU)
  Receive Date: 20211203
  Receipt Date: 20251101
  Transmission Date: 20260118
  Serious: Yes (Other)
  Sender: CELLTRION
  Company Number: EU-CELLTRION INC.-2021SE016249

PATIENT

DRUGS (14)
  1. RITUXIMAB [Suspect]
     Active Substance: RITUXIMAB
     Indication: Immunosuppression
     Route: 065
  2. RITUXIMAB [Suspect]
     Active Substance: RITUXIMAB
     Indication: Systemic lupus erythematosus
  3. BELIMUMAB [Suspect]
     Active Substance: BELIMUMAB
     Indication: Immunosuppression
     Route: 065
  4. DEXAMETHASONE [Suspect]
     Active Substance: DEXAMETHASONE
     Indication: Systemic lupus erythematosus
     Dosage: 20-50 MG, FOLLOWED BY 10 DAYS OF REST BEFORE START OF THE NEXT TREATMENT
     Route: 065
  5. MYCOPHENOLATE MOFETIL [Suspect]
     Active Substance: MYCOPHENOLATE MOFETIL
     Indication: Immunosuppression
     Route: 065
  6. MYCOPHENOLATE MOFETIL [Suspect]
     Active Substance: MYCOPHENOLATE MOFETIL
     Indication: Systemic lupus erythematosus
     Dosage: UNK
  7. CYCLOPHOSPHAMIDE [Suspect]
     Active Substance: CYCLOPHOSPHAMIDE
     Indication: Immunosuppression
     Dosage: UNK
     Route: 065
  8. CYCLOPHOSPHAMIDE [Suspect]
     Active Substance: CYCLOPHOSPHAMIDE
     Indication: Systemic lupus erythematosus
     Dosage: UNK
  9. HYDROXYCHLOROQUINE [Suspect]
     Active Substance: HYDROXYCHLOROQUINE
     Indication: Immunosuppression
     Route: 065
  10. PREDNISOLONE [Suspect]
     Active Substance: PREDNISOLONE
     Indication: Immunosuppression
     Route: 065
  11. METHOTREXATE [Suspect]
     Active Substance: METHOTREXATE
     Indication: Immunosuppression
     Route: 065
  12. METHOTREXATE [Suspect]
     Active Substance: METHOTREXATE
     Indication: Systemic lupus erythematosus
  13. BORTEZOMIB [Suspect]
     Active Substance: BORTEZOMIB
     Indication: Systemic lupus erythematosus
     Dosage: 1.3 MG/M2 (ON DAY 1, 4, 8 AND 11)
     Route: 058
  14. VELCADE [Suspect]
     Active Substance: BORTEZOMIB
     Indication: Systemic lupus erythematosus
     Dosage: 2 CYCLES ON DAY 1, 4, 8 AND 11
     Route: 058

REACTIONS (4)
  - Organising pneumonia [Unknown]
  - Off label use [Unknown]
  - Product use in unapproved indication [Unknown]
  - Intentional product use issue [Unknown]
